FAERS Safety Report 5325104-0 (Version None)
Quarter: 2007Q2

REPORT INFORMATION
  Report Type: 
  Country: None (occurrence: None)
  Receive Date: 20070515
  Receipt Date: 20070503
  Transmission Date: 20071010
  Serious: Yes (Hospitalization)
  Sender: FDA-Public Use
  Company Number: TW-ROCHE-492900

PATIENT
  Age: 50 Year
  Sex: Female

DRUGS (2)
  1. PEGASYS [Suspect]
     Indication: HEPATITIS C
     Route: 065
     Dates: start: 20070206, end: 20070307
  2. ROBATROL [Suspect]
     Indication: HEPATITIS C
     Route: 048
     Dates: start: 20070206, end: 20070307

REACTIONS (3)
  - ANAEMIA [None]
  - HAEMATURIA [None]
  - HAEMOLYTIC ANAEMIA [None]
